FAERS Safety Report 8596265 (Version 4)
Quarter: 2013Q2

REPORT INFORMATION
  Report Type: Spontaneous
  Country: US (occurrence: US)
  Receive Date: 20120605
  Receipt Date: 20130524
  Transmission Date: 20140414
  Serious: No
  Sender: FDA-Public Use
  Company Number: US-BAYER-2012-054919

PATIENT
  Age: 30 Year
  Sex: Female
  Weight: 92.52 kg

DRUGS (3)
  1. MIRENA [Suspect]
     Indication: CONTRACEPTION
     Dosage: 20 MCG/24HR, CONT
     Route: 015
     Dates: start: 20100505, end: 20120531
  2. ADVAIR [Concomitant]
     Indication: ASTHMA
     Dosage: UNK; 2 PUFFS 8 D
  3. ALBUTEROL [Concomitant]
     Indication: ASTHMA
     Dosage: UNK UNK, PRN

REACTIONS (5)
  - Pregnancy with contraceptive device [Recovered/Resolved]
  - Twin pregnancy [Recovered/Resolved]
  - Device expulsion [None]
  - Drug ineffective [None]
  - Placental transfusion syndrome [None]
